FAERS Safety Report 9381476 (Version 1)
Quarter: 2013Q3

REPORT INFORMATION
  Report Type: Spontaneous
  Country: CZ (occurrence: CZ)
  Receive Date: 20130703
  Receipt Date: 20130703
  Transmission Date: 20140515
  Serious: Yes (Life-Threatening, Hospitalization, Other)
  Sender: FDA-Public Use
  Company Number: PHHY2013CZ068765

PATIENT
  Sex: Female
  Weight: 123 kg

DRUGS (3)
  1. LEPONEX [Suspect]
     Indication: SCHIZOPHRENIA, PARANOID TYPE
     Dosage: 100 MG, UNK (1 DOSE/DAY TOGETHER 6 DOSES).
     Route: 048
     Dates: end: 20130614
  2. HALOPERIDOL [Concomitant]
     Indication: SCHIZOPHRENIA, PARANOID TYPE
     Dosage: 1.5 MG, UNK
     Route: 048
  3. NATRII VALPROAS [Concomitant]
     Dosage: UNK

REACTIONS (3)
  - Urosepsis [Unknown]
  - Disseminated intravascular coagulation [Unknown]
  - Febrile neutropenia [Unknown]
